FAERS Safety Report 9646429 (Version 1)
Quarter: 2013Q4

REPORT INFORMATION
  Report Type: Spontaneous
  Country: IT (occurrence: None)
  Receive Date: 20131024
  Receipt Date: 20131024
  Transmission Date: 20140711
  Serious: Yes (Hospitalization)
  Sender: FDA-Public Use
  Company Number: SP07122

PATIENT
  Age: 72 Year
  Sex: Female

DRUGS (6)
  1. XIFAXAN [Suspect]
     Indication: DIARRHOEA
     Route: 048
     Dates: start: 20121127, end: 20121127
  2. CLEXANE [Concomitant]
     Route: 058
     Dates: start: 20121127, end: 20121127
  3. EMAGEL [Concomitant]
  4. LAROXYL [Concomitant]
  5. RIVOTRIL [Concomitant]
  6. PAROXETINA [Concomitant]

REACTIONS (1)
  - Rectal haemorrhage [None]
